FAERS Safety Report 24997821 (Version 2)
Quarter: 2025Q2

REPORT INFORMATION
  Report Type: Spontaneous
  Country: US (occurrence: US)
  Receive Date: 20250222
  Receipt Date: 20250414
  Transmission Date: 20250717
  Serious: No
  Sender: SANOFI AVENTIS
  Company Number: US-SA-2025SA041187

PATIENT
  Age: 29 Year
  Sex: Female

DRUGS (2)
  1. DUPIXENT [Suspect]
     Active Substance: DUPILUMAB
     Indication: Dermatitis atopic
     Dates: start: 202410, end: 202410
  2. DUPIXENT [Suspect]
     Active Substance: DUPILUMAB
     Dosage: 300 MG, QOW
     Dates: start: 2024

REACTIONS (8)
  - Asthenia [Unknown]
  - Nausea [Unknown]
  - Somnolence [Unknown]
  - Weight increased [Unknown]
  - Fatigue [Unknown]
  - Dizziness [Unknown]
  - Insomnia [Unknown]
  - Injection site rash [Unknown]
